FAERS Safety Report 12348058 (Version 2)
Quarter: 2016Q3

REPORT INFORMATION
  Report Type: Spontaneous
  Country: FR (occurrence: FR)
  Receive Date: 20160509
  Receipt Date: 20160801
  Transmission Date: 20161109
  Serious: Yes (Hospitalization)
  Sender: FDA-Public Use
  Company Number: FR-GE HEALTHCARE MEDICAL DIAGNOSTICS-VISP-PR-1605S-0253

PATIENT
  Age: 54 Year
  Sex: Male

DRUGS (15)
  1. BOSOCE [Concomitant]
     Route: 048
     Dates: start: 20160128
  2. TILDIEM [Concomitant]
     Active Substance: DILTIAZEM HYDROCHLORIDE
  3. KARDEGIC [Concomitant]
     Active Substance: ASPIRIN LYSINE
     Route: 048
     Dates: start: 20160126
  4. METFORMIN [Concomitant]
     Active Substance: METFORMIN HYDROCHLORIDE
     Route: 048
     Dates: start: 20160128
  5. TIROFIBAN HYDROCHLORIDE. [Concomitant]
     Active Substance: TIROFIBAN HYDROCHLORIDE
  6. ISOSORBIDE DINITRATE. [Concomitant]
     Active Substance: ISOSORBIDE DINITRATE
  7. VOLUVEN [Suspect]
     Active Substance: HYDROXYETHYL STARCH 130/0.4
     Route: 042
     Dates: start: 20160126
  8. ARIXTRA [Suspect]
     Active Substance: FONDAPARINUX SODIUM
     Route: 042
     Dates: start: 20160126
  9. ATROPINE. [Concomitant]
     Active Substance: ATROPINE
  10. VISIPAQUE [Suspect]
     Active Substance: IODIXANOL
     Indication: DIAGNOSTIC PROCEDURE
  11. TICAGRELOR [Concomitant]
     Active Substance: TICAGRELOR
     Route: 048
     Dates: start: 20160126, end: 20160129
  12. RAMIPRIL. [Concomitant]
     Active Substance: RAMIPRIL
     Dates: start: 20160129
  13. HEPARIN [Concomitant]
     Active Substance: HEPARIN SODIUM
     Dosage: DOSE NOT REPORTED
     Route: 065
     Dates: start: 20160126
  14. VISIPAQUE [Suspect]
     Active Substance: IODIXANOL
     Indication: CHEST PAIN
     Dosage: DOSE NOT REPORTED
     Route: 042
     Dates: start: 20160126, end: 20160126
  15. TAHOR [Concomitant]
     Active Substance: ATORVASTATIN CALCIUM
     Route: 048
     Dates: start: 20160126

REACTIONS (4)
  - Erythema multiforme [Recovered/Resolved]
  - Toxic skin eruption [Recovered/Resolved]
  - Pruritus [Recovered/Resolved]
  - Erythema [Recovered/Resolved]

NARRATIVE: CASE EVENT DATE: 20160131
